FAERS Safety Report 4387579-3 (Version None)
Quarter: 2004Q2

REPORT INFORMATION
  Report Type: 
  Country: None (occurrence: None)
  Receive Date: 20040630
  Receipt Date: 20040511
  Transmission Date: 20050107
  Serious: No
  Sender: FDA-Public Use
  Company Number: 200304537

PATIENT
  Age: 60 Year
  Sex: Female

DRUGS (4)
  1. ADVAIR HFA [Suspect]
     Indication: DRUG USE FOR UNKNOWN INDICATION
     Dosage: 1PUFF TWICE PER DAY
     Route: 055
     Dates: start: 20030617
  2. ARTIFICIAL FLAVORING [Suspect]
     Dosage: 1TBS AS REQUIRED
     Route: 048
     Dates: start: 20030617
  3. UNKNOWN DRUG [Suspect]
     Indication: DRUG USE FOR UNKNOWN INDICATION
     Route: 065
     Dates: start: 20030617
  4. CAPTOPRIL [Concomitant]
     Dosage: 100MG PER DAY
     Route: 048

REACTIONS (1)
  - FLATULENCE [None]
